FAERS Safety Report 19609432 (Version 1)
Quarter: 2021Q3

REPORT INFORMATION
  Report Type: Spontaneous
  Country: JP (occurrence: JP)
  Receive Date: 20210726
  Receipt Date: 20210726
  Transmission Date: 20211014
  Serious: Yes (Other)
  Sender: FDA-Public Use
  Company Number: JP-ACCORD-232807

PATIENT
  Age: 70 Year
  Sex: Male

DRUGS (2)
  1. GIMERACIL/OTERACIL/TEGAFUR [Concomitant]
     Active Substance: GIMERACIL\OTERACIL\TEGAFUR
     Indication: GASTRIC CANCER
     Dosage: 120 MG/DAY ON DAYS 1?14
  2. OXALIPLATIN. [Suspect]
     Active Substance: OXALIPLATIN
     Indication: GASTRIC CANCER
     Dosage: ON DAY 1

REACTIONS (1)
  - Amaurosis fugax [Recovered/Resolved]
